FAERS Safety Report 19975972 (Version 3)
Quarter: 2024Q2

REPORT INFORMATION
  Report Type: Report from Study
  Country: IE (occurrence: IE)
  Receive Date: 20211020
  Receipt Date: 20240607
  Transmission Date: 20240716
  Serious: Yes (Hospitalization, Other)
  Sender: FDA-Public Use
  Company Number: IE-TAKEDA-2021TUS001737

PATIENT
  Age: 32 Year
  Sex: Male

DRUGS (4)
  1. HUMAN IMMUNOGLOBULIN G\HYALURONIDASE RECOMBINANT HUMAN [Suspect]
     Active Substance: HUMAN IMMUNOGLOBULIN G\HYALURONIDASE (HUMAN RECOMBINANT)
     Indication: Hypogammaglobulinaemia
     Dosage: 50 GRAM, Q3WEEKS
     Route: 058
     Dates: start: 20190409
  2. HUMAN IMMUNOGLOBULIN G\HYALURONIDASE RECOMBINANT HUMAN [Suspect]
     Active Substance: HUMAN IMMUNOGLOBULIN G\HYALURONIDASE (HUMAN RECOMBINANT)
     Dosage: 50 GRAM, Q3WEEKS
     Route: 058
     Dates: start: 20211101
  3. HUMAN IMMUNOGLOBULIN G\HYALURONIDASE RECOMBINANT HUMAN [Suspect]
     Active Substance: HUMAN IMMUNOGLOBULIN G\HYALURONIDASE (HUMAN RECOMBINANT)
     Dosage: 50 GRAM
     Route: 058
  4. SAIZEN [Concomitant]
     Active Substance: SOMATROPIN
     Dosage: 0.3 MILLIGRAM
     Route: 050

REACTIONS (7)
  - Pneumonia [Recovering/Resolving]
  - COVID-19 [Recovered/Resolved]
  - Malaise [Recovering/Resolving]
  - Weight decreased [Unknown]
  - Needle issue [Unknown]
  - Infusion site pain [Unknown]
  - Product dose omission issue [Unknown]

NARRATIVE: CASE EVENT DATE: 20210729
